FAERS Safety Report 8517662 (Version 12)
Quarter: 2012Q4

REPORT INFORMATION
  Report Type: 
  Country: JP (occurrence: JP)
  Receive Date: 20120417
  Receipt Date: 20121025
  Transmission Date: 20130627
  Serious: Yes (Hospitalization)
  Sender: FDA-Public Use
  Company Number: PHHO2012JP005426

PATIENT
  Age: 67 Year
  Sex: Female
  Weight: 51 kg

DRUGS (29)
  1. INC424 [Suspect]
     Indication: MYELOFIBROSIS
     Dosage: 30 mg, BID
     Route: 048
     Dates: start: 20111212, end: 20120331
  2. INC424 [Suspect]
     Dosage: UNK
     Route: 048
     Dates: start: 20120402, end: 20120409
  3. INC424 [Suspect]
     Dosage: 20 mg, QD
     Dates: start: 20120525, end: 20120818
  4. PREDNISOLONE [Suspect]
     Indication: PLATELET COUNT DECREASED
     Dosage: 10 mg, QD
     Route: 048
     Dates: start: 20040518
  5. EXJADE [Concomitant]
     Indication: HAEMOCHROMATOSIS
     Dosage: 125 mg, UNK
     Route: 048
     Dates: start: 20100524, end: 20120521
  6. EXJADE [Concomitant]
     Dosage: 125 mg, UNK
     Route: 048
  7. TAKEPRON [Concomitant]
     Indication: PROPHYLAXIS AGAINST GASTROINTESTINAL ULCER
     Dosage: 30 mg, UNK
     Dates: start: 20081014
  8. LASIX [Concomitant]
     Indication: OEDEMA PERIPHERAL
     Dosage: 20 mg, UNK
     Route: 048
     Dates: start: 20030811
  9. MS CONTIN [Concomitant]
     Indication: CANCER PAIN
     Dosage: 20 mg, UNK
     Route: 048
     Dates: start: 20091214
  10. OPSO [Concomitant]
     Indication: CANCER PAIN
     Dosage: UNK
     Route: 048
     Dates: start: 20091214
  11. HALCION [Concomitant]
     Indication: INSOMNIA
     Dosage: 0.25 mg, UNK
     Route: 048
     Dates: start: 20041207
  12. MAGNESIUM OXIDE [Concomitant]
     Indication: CONSTIPATION
     Dosage: 2000 mg, UNK
     Route: 048
     Dates: start: 20080715
  13. ACETAMINOPHEN [Concomitant]
     Indication: HERPES ZOSTER
     Dosage: 1600 mg, UNK
     Dates: start: 20120402
  14. ACETAMINOPHEN [Concomitant]
     Dosage: 1200 mg
  15. METHYCOBAL [Concomitant]
     Indication: NEUROPATHY PERIPHERAL
     Dosage: 1500 mg, UNK
     Route: 048
     Dates: start: 20120402
  16. CELECOXIB [Concomitant]
     Indication: ARTHRALGIA
     Dosage: 200 mg, UNK
     Route: 048
     Dates: start: 20120402, end: 20120409
  17. PURSENNID [Concomitant]
     Indication: CONSTIPATION
     Dosage: 24 mg, UNK
     Dates: start: 20120424
  18. LYRICA [Concomitant]
     Indication: CANCER PAIN
     Dosage: 300 mg, UNK
     Route: 048
     Dates: start: 20120424
  19. MEROPENEM [Concomitant]
     Indication: INFLAMMATION
     Dosage: 2 g, UNK
     Route: 048
     Dates: start: 20120827
  20. FEBUXOSTAT [Concomitant]
     Indication: HYPERURICAEMIA
     Dosage: 20 mg, UNK
     Route: 048
     Dates: start: 20120523
  21. SOSEGON [Concomitant]
     Indication: PAIN MANAGEMENT
     Dosage: UNK
     Route: 042
     Dates: start: 20120820
  22. MAXALT [Concomitant]
     Indication: HEADACHE
     Dosage: UNK
     Dates: start: 20120604
  23. ALOSENN [Concomitant]
     Indication: CONSTIPATION
     Dosage: UNK
     Route: 048
     Dates: start: 20040523
  24. TEICOPLANIN [Concomitant]
     Indication: INFLAMMATION
     Dosage: UNK
     Route: 042
     Dates: start: 20120827
  25. TERRANAS [Concomitant]
     Indication: HEADACHE
     Dosage: 10 mg, UNK
     Route: 048
     Dates: start: 20120604
  26. ZOSYN [Concomitant]
     Dosage: UNK
     Route: 042
     Dates: start: 20120820, end: 20120827
  27. MERISLON [Concomitant]
     Indication: DIZZINESS
     Dosage: 18 mg, UNK
     Route: 048
     Dates: start: 20120528
  28. LAXOBERON [Concomitant]
     Indication: CONSTIPATION
     Dosage: UNK
     Route: 048
     Dates: start: 20120521
  29. AMOBAN [Concomitant]
     Indication: INSOMNIA
     Dosage: 7.5 mg, UNK
     Route: 048
     Dates: start: 20120424

REACTIONS (7)
  - Enterocolitis [Recovered/Resolved]
  - Pyrexia [Recovered/Resolved]
  - Cholecystitis acute [Recovered/Resolved]
  - Herpes zoster [Recovered/Resolved]
  - Urinary tract infection [Recovered/Resolved]
  - Pneumonia [Recovered/Resolved]
  - Pneumonia bacterial [Recovered/Resolved]
